FAERS Safety Report 7480977-0 (Version None)
Quarter: 2011Q2

REPORT INFORMATION
  Report Type: 
  Country: None (occurrence: None)
  Receive Date: 20110512
  Receipt Date: 20110512
  Transmission Date: 20111010
  Serious: Yes (Disabling)
  Sender: FDA-Public Use
  Company Number: None

PATIENT
  Sex: Female
  Weight: 90.7194 kg

DRUGS (1)
  1. METHOTREXATE [Suspect]
     Indication: ARTHRITIS
     Dosage: 4 - 2.5 MG. ONCE A WEEK STARTED OUT W 5 - 2.5MG WEEKLY

REACTIONS (4)
  - ALOPECIA [None]
  - RETINAL DETACHMENT [None]
  - CATARACT [None]
  - BLINDNESS UNILATERAL [None]
